FAERS Safety Report 21332368 (Version 2)
Quarter: 2022Q3

REPORT INFORMATION
  Report Type: Report from Study
  Country: US (occurrence: US)
  Receive Date: 20220914
  Receipt Date: 20220916
  Transmission Date: 20221027
  Serious: Yes (Hospitalization, Other)
  Sender: FDA-Public Use
  Company Number: US-BAXTER-2022BAX019370

PATIENT
  Age: 7 Year
  Sex: Female
  Weight: 21.4 kg

DRUGS (15)
  1. DOXORUBICIN [Suspect]
     Active Substance: DOXORUBICIN
     Indication: Neuroblastoma
     Dosage: UNK
     Route: 065
     Dates: start: 20201207, end: 20210313
  2. CYCLOPHOSPHAMIDE [Suspect]
     Active Substance: CYCLOPHOSPHAMIDE
     Indication: Neuroblastoma
     Dosage: UNK
     Route: 065
     Dates: start: 20201207, end: 20210313
  3. CYCLOPHOSPHAMIDE [Suspect]
     Active Substance: CYCLOPHOSPHAMIDE
     Indication: Recurrent cancer
     Dosage: UNK
     Route: 065
     Dates: start: 20210422, end: 20210429
  4. CYCLOPHOSPHAMIDE [Suspect]
     Active Substance: CYCLOPHOSPHAMIDE
     Indication: Refractory cancer
     Dosage: MAXIMUM 5 DAYS EVERY 21 DAYS (250 MG/M2, 1 IN 1 DAY)
     Route: 042
     Dates: start: 20220824
  5. VENETOCLAX [Suspect]
     Active Substance: VENETOCLAX
     Indication: Refractory cancer
     Dosage: 350 MG ,1 IN 1 D
     Route: 048
     Dates: start: 20220822
  6. VENETOCLAX [Suspect]
     Active Substance: VENETOCLAX
     Indication: Recurrent cancer
  7. TOPOTECAN HYDROCHLORIDE [Suspect]
     Active Substance: TOPOTECAN HYDROCHLORIDE
     Indication: Refractory cancer
     Dosage: MAXIMUM 5 DAYS EVERY 21 DAYS (0.75MG/M2 , 1 IN 1D)
     Route: 042
     Dates: start: 20220824
  8. TOPOTECAN HYDROCHLORIDE [Suspect]
     Active Substance: TOPOTECAN HYDROCHLORIDE
     Indication: Recurrent cancer
  9. ONDANSETRON [Concomitant]
     Active Substance: ONDANSETRON
     Indication: Prophylaxis of nausea and vomiting
     Dosage: 4MG (4MG, 1 IN 1D)
     Route: 048
     Dates: start: 20220822
  10. OXYCODONE [Concomitant]
     Active Substance: OXYCODONE
     Indication: Pain in extremity
     Dosage: 4-6 HOURS AS NEEDED (2.5MG)
     Route: 048
     Dates: start: 20220822
  11. IBUPROFEN [Concomitant]
     Active Substance: IBUPROFEN
     Indication: Pain in extremity
     Dosage: AS NEEDED (200MG, 1 IN 6HR)
     Route: 048
     Dates: start: 20220822
  12. ACETAMINOPHEN [Concomitant]
     Active Substance: ACETAMINOPHEN
     Indication: Pain in extremity
     Dosage: 1950MG (325MG, 1 IN 4 HR)
     Route: 048
     Dates: start: 20220822
  13. POLYETHYLENE GLYCOL 3350 [Concomitant]
     Active Substance: POLYETHYLENE GLYCOL 3350
     Indication: Constipation
     Dosage: EVERY DAY AS NEEDED (17GM)
     Route: 048
     Dates: start: 20220825
  14. CETIRIZINE [Concomitant]
     Active Substance: CETIRIZINE HYDROCHLORIDE
     Indication: Pain in extremity
     Dosage: 10MG (10MG, 1IN 1 D)
     Route: 048
     Dates: start: 202208
  15. SULFAMETHOXAZOLE AND TRIMETHOPRIM [Concomitant]
     Active Substance: SULFAMETHOXAZOLE\TRIMETHOPRIM
     Indication: Antifungal prophylaxis
     Dosage: TWICE A DAYS ON SATURDAYS AND SUNDAYS (40MG)
     Route: 048
     Dates: start: 2022

REACTIONS (1)
  - Febrile neutropenia [Recovered/Resolved]

NARRATIVE: CASE EVENT DATE: 20220831
